FAERS Safety Report 5626960-9 (Version None)
Quarter: 2008Q1

REPORT INFORMATION
  Report Type: 
  Country: None (occurrence: None)
  Receive Date: 20080212
  Receipt Date: 20080130
  Transmission Date: 20080703
  Serious: Yes (Other)
  Sender: FDA-Public Use
  Company Number: WAES 0801FRA00088

PATIENT
  Age: 53 Year
  Sex: Male

DRUGS (11)
  1. ISENTRESS [Suspect]
     Indication: HIV INFECTION
     Dosage: 400 MG/BID PO, 400 MG/BID PO
     Route: 048
     Dates: start: 20070626, end: 20070913
  2. ISENTRESS [Suspect]
     Indication: HIV INFECTION
     Dosage: 400 MG/BID PO, 400 MG/BID PO
     Route: 048
     Dates: start: 20071226, end: 20080114
  3. TAB EMTRICITABINE (+) TENOFOVIR DISOPROXIL FUMA [Suspect]
     Indication: HIV INFECTION
     Dosage: 1 TAB/DAILY PO
     Route: 048
     Dates: start: 20071226, end: 20080114
  4. TAB TIPRANAVIR [Suspect]
     Indication: HIV INFECTION
     Dosage: 500 MG/BID PO
     Route: 048
     Dates: start: 20071226, end: 20080114
  5. CAP RITONAVIR [Suspect]
     Indication: HIV INFECTION
     Dosage: 200 MG/BID PO
     Route: 048
     Dates: start: 20070605, end: 20080114
  6. TAB MARAVIROC [Suspect]
     Indication: HIV INFECTION
     Dosage: 300 MG/BID PO
     Route: 048
     Dates: start: 20071226, end: 20080114
  7. DIDANOSINE [Suspect]
     Indication: HIV INFECTION
     Dosage: 250 MG/DAILY PO
     Route: 048
     Dates: start: 20071226, end: 20080114
  8. FOSAMPRENAVIR CALCIUM [Concomitant]
  9. LOPERAMIDE HCL [Concomitant]
  10. NEVIRAPINE [Concomitant]
  11. PRAVASTATIN SODIUM [Concomitant]

REACTIONS (1)
  - CYTOLYTIC HEPATITIS [None]
